FAERS Safety Report 8325626-4 (Version None)
Quarter: 2012Q2

REPORT INFORMATION
  Report Type: 
  Country: None (occurrence: None)
  Receive Date: 20120427
  Receipt Date: 20120412
  Transmission Date: 20120825
  Serious: Yes (Other)
  Sender: FDA-Public Use
  Company Number: ADR-2012279039

PATIENT
  Sex: Female

DRUGS (1)
  1. TOPIRAMATE [Suspect]
     Dosage: ORAL
     Route: 048
     Dates: start: 20111215

REACTIONS (3)
  - SINUSITIS [None]
  - BLINDNESS [None]
  - ANGLE CLOSURE GLAUCOMA [None]
